FAERS Safety Report 7750389-0 (Version None)
Quarter: 2011Q3

REPORT INFORMATION
  Report Type: 
  Country: None (occurrence: None)
  Receive Date: 20110914
  Receipt Date: 20110909
  Transmission Date: 20111222
  Serious: Yes (Hospitalization, Other)
  Sender: FDA-Public Use
  Company Number: US-ABBOTT-08P-163-0453200-00

PATIENT
  Sex: Female
  Weight: 69.008 kg

DRUGS (22)
  1. POTASSIUM [Concomitant]
     Indication: MINERAL SUPPLEMENTATION
     Route: 048
     Dates: start: 20080201, end: 20080301
  2. HUMIRA [Suspect]
     Indication: CROHN'S DISEASE
     Dosage: LOADING DOSE
     Route: 058
     Dates: start: 20080429, end: 20080429
  3. HUMIRA [Suspect]
     Indication: CROHN'S DISEASE
     Route: 058
     Dates: start: 20100101
  4. CYMBALTA [Concomitant]
     Indication: DEPRESSION
     Route: 048
     Dates: start: 20040101
  5. XANAX [Concomitant]
     Indication: ANXIETY
     Route: 048
     Dates: start: 20060101
  6. VISTARIL [Concomitant]
     Indication: PRURITUS
     Route: 048
     Dates: start: 20060101
  7. IBUPROFEN [Suspect]
     Indication: PAIN
     Route: 048
     Dates: start: 20080517, end: 20080519
  8. IBUPROFEN [Suspect]
  9. HUMIRA [Suspect]
     Route: 058
  10. PREDNISONE [Suspect]
     Indication: PRODUCT USED FOR UNKNOWN INDICATION
  11. FERROUS SULFATE TAB [Concomitant]
     Indication: ANAEMIA
     Route: 048
     Dates: start: 20080424
  12. VITAMIN B-12 [Concomitant]
     Indication: VITAMIN SUPPLEMENTATION
     Dates: start: 20080425, end: 20080425
  13. PREDNISONE [Concomitant]
     Indication: CROHN'S DISEASE
     Route: 048
     Dates: end: 20080430
  14. LOTAB [Concomitant]
     Indication: PAIN
     Dosage: USUALLY TAKE 3 A DAY
     Route: 048
     Dates: start: 20060101
  15. VISTARIL [Concomitant]
  16. SEROQUEL [Concomitant]
     Indication: SLEEP DISORDER THERAPY
  17. LASIX [Concomitant]
     Indication: SWELLING
     Dosage: 40-80 MG DAILY
     Route: 048
     Dates: start: 20080201, end: 20080301
  18. POTASSIUM [Concomitant]
     Indication: PROPHYLAXIS
  19. HUMIRA [Suspect]
     Route: 058
  20. MERCAPTOPURINE [Concomitant]
     Indication: CROHN'S DISEASE
     Route: 048
     Dates: start: 20060101, end: 20080430
  21. SEROQUEL [Concomitant]
     Indication: DEPRESSION
     Route: 048
     Dates: start: 20040101
  22. SOMA [Concomitant]
     Indication: MUSCLE RELAXANT THERAPY
     Dosage: ONE PILL USUALLY AT NIGHT TIME
     Dates: start: 20060101

REACTIONS (7)
  - PAIN IN EXTREMITY [None]
  - SWELLING [None]
  - GAIT DISTURBANCE [None]
  - TOOTH EROSION [None]
  - FATIGUE [None]
  - ABDOMINAL PAIN UPPER [None]
  - PAIN [None]
